FAERS Safety Report 6019819-9 (Version None)
Quarter: 2008Q4

REPORT INFORMATION
  Report Type: 
  Country: None (occurrence: None)
  Receive Date: 20081224
  Receipt Date: 20081209
  Transmission Date: 20090506
  Serious: No
  Sender: FDA-Public Use
  Company Number: US-B.I. PHARMACEUTICALS,INC./RIDGEFIELD-2008-BP-18459BP

PATIENT
  Age: 55 Year
  Sex: Female

DRUGS (5)
  1. MIRAPEX [Suspect]
     Indication: PARKINSON'S DISEASE
     Dosage: 3MG
     Route: 048
     Dates: start: 20050101, end: 20081101
  2. SINEMET [Concomitant]
     Indication: PARKINSON'S DISEASE
  3. PARCOPA [Concomitant]
     Indication: PARKINSON'S DISEASE
  4. TRAMADOL [Concomitant]
     Indication: ARTHRITIS
  5. ESTRACE [Concomitant]

REACTIONS (1)
  - DIPLOPIA [None]
